FAERS Safety Report 10256031 (Version 1)
Quarter: 2014Q2

REPORT INFORMATION
  Report Type: Spontaneous
  Country: US (occurrence: US)
  Receive Date: 20140624
  Receipt Date: 20140624
  Transmission Date: 20141212
  Serious: No
  Sender: FDA-Public Use
  Company Number: US-ZOGENIX, INC.-2012ZX000051

PATIENT
  Sex: Female
  Weight: 90.8 kg

DRUGS (2)
  1. SUMAVEL DOSEPRO [Suspect]
     Indication: MIGRAINE
  2. BUTALBITAL [Concomitant]
     Indication: MIGRAINE
     Route: 048

REACTIONS (2)
  - Nausea [Recovered/Resolved]
  - Eye pain [Recovered/Resolved]
